FAERS Safety Report 18953009 (Version 1)
Quarter: 2021Q1

REPORT INFORMATION
  Report Type: Spontaneous
  Country: US (occurrence: US)
  Receive Date: 20210227
  Receipt Date: 20210227
  Transmission Date: 20210420
  Serious: No
  Sender: FDA-Public Use
  Company Number: None

PATIENT
  Age: 58 Year
  Sex: Female
  Weight: 72 kg

DRUGS (8)
  1. NAC [Concomitant]
  2. ZINC PICOLINATE [Concomitant]
     Active Substance: ZINC PICOLINATE
  3. ALBUTEROL. [Concomitant]
     Active Substance: ALBUTEROL
  4. C [Concomitant]
  5. TIROSINT [Concomitant]
     Active Substance: LEVOTHYROXINE SODIUM
  6. D [Concomitant]
  7. LISINOPRIL 10 MG [Suspect]
     Active Substance: LISINOPRIL
     Indication: HYPERTENSION
     Dosage: ?          QUANTITY:90 TABLET(S);?
     Route: 048
     Dates: start: 20201204
  8. SELENIUM [Concomitant]
     Active Substance: SELENIUM

REACTIONS (3)
  - Dizziness [None]
  - Vomiting [None]
  - Abdominal rigidity [None]

NARRATIVE: CASE EVENT DATE: 20210210
